FAERS Safety Report 17975848 (Version 1)
Quarter: 2020Q3

REPORT INFORMATION
  Report Type: Spontaneous
  Country: PT (occurrence: PT)
  Receive Date: 20200702
  Receipt Date: 20200702
  Transmission Date: 20201103
  Serious: Yes (Other)
  Sender: FDA-Public Use
  Company Number: NVSC2020PT186081

PATIENT
  Age: 40 Year
  Sex: Male

DRUGS (10)
  1. PREDNISOLONE. [Suspect]
     Active Substance: PREDNISOLONE
     Dosage: STARTED FROM THE END OF 3 MONTHS PO
     Route: 048
  2. BASILIXIMAB [Suspect]
     Active Substance: BASILIXIMAB
     Indication: PROPHYLAXIS AGAINST TRANSPLANT REJECTION
     Dosage: 20MG, INDUCTION THERAPY ON DAY OF OPERATION AND REPEATED ON 4TH POD
     Route: 065
     Dates: start: 20170314
  3. TACROLIMUS. [Suspect]
     Active Substance: TACROLIMUS
     Dosage: STARTED 7 DAYS PRIOR TO TRANSPLANT
     Route: 065
     Dates: start: 201703
  4. MYCOPHENOLATE MOFETIL. [Suspect]
     Active Substance: MYCOPHENOLATE MOFETIL
     Indication: IMMUNOSUPPRESSION
     Dosage: 500 MG, QD
     Route: 065
  5. RITUXIMAB. [Suspect]
     Active Substance: RITUXIMAB
     Indication: PROPHYLAXIS AGAINST TRANSPLANT REJECTION
     Dosage: 375 MG/M2 (SINGLE DOSE ADMINISTRATION 2 WEEKS PRE?TRANSPLANT)
     Route: 042
     Dates: start: 201703
  6. MYCOPHENOLATE MOFETIL. [Suspect]
     Active Substance: MYCOPHENOLATE MOFETIL
     Indication: PROPHYLAXIS AGAINST TRANSPLANT REJECTION
     Dosage: 1 G, Q12H (TILL 3 MONTHS)
     Route: 065
     Dates: start: 201703
  7. METHYLPREDNISOLONE. [Suspect]
     Active Substance: METHYLPREDNISOLONE
     Indication: PROPHYLAXIS AGAINST TRANSPLANT REJECTION
     Dosage: 500 MG INDUCTION THERAPY GIVEN ON OPERATIVE DAY AND SLOWLY TAPERED OFF TO GET REPLACED BY ORAL PREDN
     Route: 042
     Dates: start: 20170314
  8. PREDNISOLONE. [Suspect]
     Active Substance: PREDNISOLONE
     Indication: PROPHYLAXIS AGAINST TRANSPLANT REJECTION
     Dosage: STARTED FROM THE END OF 6 MONTHS PO AND WAS CONTINUED
     Route: 048
  9. PREDNISOLONE. [Suspect]
     Active Substance: PREDNISOLONE
     Dosage: TILL END OF 3 MONTHS PO
     Route: 048
  10. TACROLIMUS. [Suspect]
     Active Substance: TACROLIMUS
     Indication: PROPHYLAXIS AGAINST TRANSPLANT REJECTION
     Dosage: TARGET TACROLIMUS TROUGH LEVEL WAS 8?10 NG/ML.
     Route: 065

REACTIONS (4)
  - Intentional product use issue [Unknown]
  - Renal graft infection [Unknown]
  - Pneumonia [Unknown]
  - Off label use [Unknown]
